FAERS Safety Report 6438657-6 (Version None)
Quarter: 2009Q4

REPORT INFORMATION
  Report Type: 
  Country: None (occurrence: None)
  Receive Date: 20091110
  Receipt Date: 20091026
  Transmission Date: 20100525
  Serious: Yes (Hospitalization, Disabling)
  Sender: FDA-Public Use
  Company Number: 2009AC000332

PATIENT
  Age: 53 Year
  Sex: Female

DRUGS (89)
  1. DIGOXIN [Suspect]
     Dosage: .25 MG;QD;PO
     Route: 048
  2. ZAROXOLYN [Concomitant]
  3. ACCUPRIL [Concomitant]
  4. LASIX [Concomitant]
  5. OXYCONTIN [Concomitant]
  6. ADVAIR DISKUS 100/50 [Concomitant]
  7. AMBIEN [Concomitant]
  8. SOMA [Concomitant]
  9. ALDACTONE [Concomitant]
  10. PERCOCET [Concomitant]
  11. CLIMARA [Concomitant]
  12. ZOCOR [Concomitant]
  13. NEXIUM [Concomitant]
  14. JANUMET [Concomitant]
  15. METHOTREXATE [Concomitant]
  16. BYETTA [Concomitant]
  17. DOXAZOSIN [Concomitant]
  18. PROVIGIL [Concomitant]
  19. PREDNISONE [Concomitant]
  20. INDERAL [Concomitant]
  21. FOLIC ACID [Concomitant]
  22. CEPHALEXIN [Concomitant]
  23. FLUOCINONIDE [Concomitant]
  24. CLOBETASOL PROPIONATE [Concomitant]
  25. GLIMEPIRIDE [Concomitant]
  26. LYRICA [Concomitant]
  27. CARISOPRODOL [Concomitant]
  28. VANIQA [Concomitant]
  29. MIRAPEX [Concomitant]
  30. AMOXICILLIN [Concomitant]
  31. OXYCODONE HCL [Concomitant]
  32. ALPRAZOLAM [Concomitant]
  33. CIPROFLOXACIN [Concomitant]
  34. PHENAZOPYRIDINE [Concomitant]
  35. OMNICEF [Concomitant]
  36. SKELAXIN [Concomitant]
  37. LEVAQUIN [Concomitant]
  38. METRONIDAZOLE [Concomitant]
  39. ONDANSETRON [Concomitant]
  40. POTASSIUM CHLORIDE [Concomitant]
  41. DOXYCYCLINE [Concomitant]
  42. PRO-AIR [Concomitant]
  43. AVELOX [Concomitant]
  44. LEXAPRO [Concomitant]
  45. ASTELIN [Concomitant]
  46. HYDROCODONE [Concomitant]
  47. ASMANEX TWISTHALER [Concomitant]
  48. CLOBETASOL PROPIONATE [Concomitant]
  49. DIPHENOXYLATE-ATRO [Concomitant]
  50. PANGESTYME [Concomitant]
  51. TRIAMCINOLONE [Concomitant]
  52. NASONEX [Concomitant]
  53. SIMVASTATIN [Concomitant]
  54. METOLAZONE [Concomitant]
  55. LUNESTA [Concomitant]
  56. HYDROMORPHONE HCL [Concomitant]
  57. PENICILLIN VK [Concomitant]
  58. CLIMARA [Concomitant]
  59. CATAPRES [Concomitant]
  60. CHOLINE MAG TRISAL [Concomitant]
  61. CLONAZEPAM [Concomitant]
  62. AVINZA [Concomitant]
  63. OXYCODONE HCL AND ACETAMINOPHEN [Concomitant]
  64. AZITHROMYCIN [Concomitant]
  65. ECONAZOLE NITRATE [Concomitant]
  66. METHYLIN [Concomitant]
  67. DIPHENOXYLATE [Concomitant]
  68. AEROCHAMBER INHALER [Concomitant]
  69. LIDOCAINE [Concomitant]
  70. MORPHINE SULFATE [Concomitant]
  71. NYSTATIN [Concomitant]
  72. ESTRADIOL [Concomitant]
  73. VOLTAREN [Concomitant]
  74. WELLBUTRIN [Concomitant]
  75. K-DUR [Concomitant]
  76. PANCREATIC ENZYME [Concomitant]
  77. PRAVACHOL [Concomitant]
  78. LODINE [Concomitant]
  79. PRILOSEC [Concomitant]
  80. LOPID [Concomitant]
  81. BENTYL [Concomitant]
  82. ESTRADERM [Concomitant]
  83. TRICOR [Concomitant]
  84. FOSAMAX [Concomitant]
  85. ZOFRAN [Concomitant]
  86. VYTORIN [Concomitant]
  87. NABUMETONE [Concomitant]
  88. LOZOL [Concomitant]
  89. ANTIDEPRESSANT [Concomitant]

REACTIONS (20)
  - ANXIETY [None]
  - DEHYDRATION [None]
  - DEPRESSED MOOD [None]
  - DISTURBANCE IN ATTENTION [None]
  - FEAR [None]
  - HYPOTENSION [None]
  - INTERVERTEBRAL DISC PROTRUSION [None]
  - LIMB DISCOMFORT [None]
  - LIMB INJURY [None]
  - MOOD SWINGS [None]
  - MUSCULOSKELETAL DISCOMFORT [None]
  - NAUSEA [None]
  - SLEEP DISORDER [None]
  - SMALL INTESTINAL OBSTRUCTION [None]
  - SOCIAL PROBLEM [None]
  - SPONDYLOLISTHESIS [None]
  - STRESS [None]
  - TENSION [None]
  - THERAPEUTIC AGENT TOXICITY [None]
  - VOMITING [None]
